FAERS Safety Report 6906138-9 (Version None)
Quarter: 2010Q3

REPORT INFORMATION
  Report Type: 
  Country: None (occurrence: None)
  Receive Date: 20100803
  Receipt Date: 20100803
  Transmission Date: 20110219
  Serious: Yes (Disabling, Other)
  Sender: FDA-Public Use
  Company Number: None

PATIENT
  Age: 45 Year
  Sex: Male
  Weight: 92.9874 kg

DRUGS (2)
  1. ATIVAN [Suspect]
  2. LORAZEPAM [Suspect]

REACTIONS (2)
  - DRUG TOLERANCE [None]
  - WITHDRAWAL SYNDROME [None]
